FAERS Safety Report 8053105-0 (Version None)
Quarter: 2012Q1

REPORT INFORMATION
  Report Type: 
  Country: None (occurrence: None)
  Receive Date: 20120118
  Receipt Date: 20120106
  Transmission Date: 20120608
  Serious: Yes (Other)
  Sender: FDA-Public Use
  Company Number: US-UCBSA-8043211

PATIENT
  Age: 24 Hour
  Sex: Male
  Weight: 3.584 kg

DRUGS (7)
  1. FOLIC ACID [Concomitant]
     Dosage: DOSE FREQ.: DAILY
     Route: 064
  2. VITAMIN TAB [Concomitant]
     Indication: VITAMIN SUPPLEMENTATION
     Dosage: 1 QD
     Route: 064
  3. VALPROATE SODIUM [Concomitant]
     Indication: CONVULSION
     Dosage: DOSE FREQ.: DAILY
     Route: 064
  4. MULTI-VITAMINS [Concomitant]
     Indication: PREGNANCY
     Dosage: 1 QD
     Route: 064
  5. KEPPRA [Suspect]
     Indication: EPILEPSY
     Dosage: DOSE FREQ.: DAILY
     Route: 064
     Dates: end: 20081115
  6. KEPPRA XR [Suspect]
     Dosage: DOSE FREQ.: DAILY
     Route: 064
     Dates: start: 20081115
  7. FOLIC ACID [Concomitant]
     Indication: VITAMIN SUPPLEMENTATION
     Dosage: DOSE FREQ.: DAILY
     Route: 064

REACTIONS (3)
  - HAEMANGIOMA [None]
  - FOETAL EXPOSURE DURING PREGNANCY [None]
  - PREMATURE BABY [None]
